FAERS Safety Report 9322596 (Version 2)
Quarter: 2013Q3

REPORT INFORMATION
  Report Type: Report from Study
  Country: US (occurrence: US)
  Receive Date: 20130531
  Receipt Date: 20130731
  Transmission Date: 20140515
  Serious: Yes (Hospitalization, Other)
  Sender: FDA-Public Use
  Company Number: US-US-EMD SERONO, INC.-7214181

PATIENT
  Age: 45 Year
  Sex: Male
  Weight: 116 kg

DRUGS (8)
  1. EGRIFTA [Suspect]
     Indication: LIPODYSTROPHY ACQUIRED
     Route: 058
     Dates: start: 201104, end: 201209
  2. EGRIFTA [Suspect]
     Route: 058
     Dates: start: 201301, end: 20130524
  3. TESTOSTERONE [Concomitant]
     Indication: PRODUCT USED FOR UNKNOWN INDICATION
     Route: 030
  4. FLUTICASONE                        /00972202/ [Concomitant]
     Indication: PRODUCT USED FOR UNKNOWN INDICATION
     Route: 045
  5. CYANOCOBALAMIN [Concomitant]
     Indication: PRODUCT USED FOR UNKNOWN INDICATION
     Route: 058
  6. TADALAFIL [Concomitant]
     Indication: PRODUCT USED FOR UNKNOWN INDICATION
     Route: 048
  7. DOCUSATE SODIUM [Concomitant]
     Indication: CONSTIPATION
     Route: 048
  8. ZOLPIDEM                           /00914902/ [Concomitant]
     Indication: SLEEP DISORDER
     Route: 048

REACTIONS (6)
  - Thyroid cancer [Recovering/Resolving]
  - Gallbladder disorder [Recovering/Resolving]
  - Concussion [Recovering/Resolving]
  - Intervertebral disc protrusion [Recovering/Resolving]
  - Road traffic accident [Unknown]
  - Neck pain [Recovering/Resolving]
